FAERS Safety Report 20899773 (Version 1)
Quarter: 2022Q2

REPORT INFORMATION
  Report Type: Spontaneous
  Country: US (occurrence: None)
  Receive Date: 20220531
  Receipt Date: 20220531
  Transmission Date: 20220721
  Serious: Yes (Other)
  Sender: FDA-Public Use
  Company Number: None

PATIENT
  Age: 61 Year
  Sex: Male
  Weight: 102.06 kg

DRUGS (8)
  1. ROSUVASTATIN [Suspect]
     Active Substance: ROSUVASTATIN
     Indication: Blood cholesterol increased
     Dosage: 20 MG DAO;U [P
     Route: 048
     Dates: start: 20220303, end: 20220323
  2. AMLODIPINE [Concomitant]
  3. ASPIRIN [Concomitant]
     Active Substance: ASPIRIN
  4. NEXIUM [Concomitant]
  5. METOPROLOL [Concomitant]
  6. LISINOPRIL [Concomitant]
  7. EZETIMIBE [Concomitant]
     Active Substance: EZETIMIBE
  8. TESTOSTERONE [Concomitant]

REACTIONS (3)
  - Asthenia [None]
  - Malaise [None]
  - Product substitution issue [None]

NARRATIVE: CASE EVENT DATE: 20220323
